FAERS Safety Report 9053480 (Version 1)
Quarter: 2013Q1

REPORT INFORMATION
  Report Type: Spontaneous
  Country: AR (occurrence: AR)
  Receive Date: 20130208
  Receipt Date: 20130208
  Transmission Date: 20140127
  Serious: Yes (Hospitalization)
  Sender: FDA-Public Use
  Company Number: PHHY2013AR011801

PATIENT
  Age: 68 None
  Sex: Female

DRUGS (1)
  1. DIOVAN [Suspect]
     Indication: HYPERTENSION
     Dosage: 320 MG, DAILY
     Route: 048
     Dates: start: 2008, end: 201301

REACTIONS (3)
  - Myocardial infarction [Recovered/Resolved]
  - Pulmonary oedema [Recovered/Resolved]
  - Depression [Recovered/Resolved]
